FAERS Safety Report 5624797-8 (Version None)
Quarter: 2008Q1

REPORT INFORMATION
  Report Type: 
  Country: None (occurrence: None)
  Receive Date: 20080213
  Receipt Date: 20080204
  Transmission Date: 20080703
  Serious: Yes (Death, Life-Threatening)
  Sender: FDA-Public Use
  Company Number: DE-ROCHE-545521

PATIENT
  Age: 58 Year
  Sex: Female

DRUGS (10)
  1. TORSEMIDE [Suspect]
     Indication: HYPERTENSION
     Route: 048
     Dates: start: 20030702, end: 20030803
  2. PHYTOMENADIONE [Suspect]
     Indication: VITAMIN SUPPLEMENTATION
     Dosage: DOSAGING REGIMEN REPORTED AS 30-0-0.
     Route: 048
     Dates: start: 20030702, end: 20030803
  3. SPIRONOLACTONE [Suspect]
     Indication: ASCITES
     Route: 048
     Dates: start: 20030720, end: 20030803
  4. BELOC-ZOK MITE [Suspect]
     Indication: HYPERTENSION
     Route: 048
     Dates: start: 20030702, end: 20030803
  5. HEPA-MERZ [Suspect]
     Route: 048
     Dates: start: 20030702, end: 20030803
  6. FERROSANOL DUODENAL [Suspect]
     Route: 048
     Dates: start: 20030720, end: 20030803
  7. FUROSEMIDE [Suspect]
     Indication: OEDEMA
     Route: 048
     Dates: start: 20030720, end: 20030803
  8. SILYMARIN [Suspect]
     Indication: HEPATOTOXICITY
     Dosage: DOSAGE IRREGULAR. DRUG NAME: SILYMARIN VON CT
     Route: 048
     Dates: start: 20030720, end: 20030803
  9. PANTOZOL [Suspect]
     Indication: PROPHYLAXIS
     Route: 048
     Dates: start: 20030720, end: 20030803
  10. ZYLORIC [Suspect]
     Indication: HYPERURICAEMIA
     Route: 048
     Dates: start: 20030730, end: 20030803

REACTIONS (2)
  - STEVENS-JOHNSON SYNDROME [None]
  - TOXIC EPIDERMAL NECROLYSIS [None]
